FAERS Safety Report 25600611 (Version 1)
Quarter: 2025Q3

REPORT INFORMATION
  Report Type: Spontaneous
  Country: US (occurrence: None)
  Receive Date: 20250723
  Receipt Date: 20250723
  Transmission Date: 20251020
  Serious: Yes (Hospitalization)
  Sender: FDA-CTU
  Company Number: None

PATIENT
  Age: 67 Year
  Sex: Female

DRUGS (1)
  1. TYMLOS [Suspect]
     Active Substance: ABALOPARATIDE
     Dosage: OTHER STRENGTH : 3120/1.56 UG/ML;?FREQUENCY : DAILY;?
     Route: 058

REACTIONS (2)
  - Myocardial infarction [None]
  - Therapy interrupted [None]
